FAERS Safety Report 7392187-6 (Version None)
Quarter: 2011Q2

REPORT INFORMATION
  Report Type: 
  Country: None (occurrence: None)
  Receive Date: 20110404
  Receipt Date: 20110324
  Transmission Date: 20111010
  Serious: Yes (Hospitalization)
  Sender: FDA-Public Use
  Company Number: B0708153A

PATIENT
  Sex: Female

DRUGS (4)
  1. CARBOPLATIN [Suspect]
     Dosage: 480MG PER DAY
     Route: 042
     Dates: start: 20110228, end: 20110228
  2. ZOPHREN [Suspect]
     Indication: PREMEDICATION
     Dosage: 8MG PER DAY
     Route: 042
     Dates: start: 20110228, end: 20110228
  3. ENDOXAN [Suspect]
     Dosage: 800MG PER DAY
     Route: 042
     Dates: start: 20110228, end: 20110228
  4. METHYLPREDNISOLONE [Suspect]
     Indication: PREMEDICATION
     Dosage: 60MG PER DAY
     Route: 042
     Dates: start: 20110228, end: 20110228

REACTIONS (1)
  - HYPERSENSITIVITY [None]
